FAERS Safety Report 7005353-6 (Version None)
Quarter: 2010Q3

REPORT INFORMATION
  Report Type: 
  Country: None (occurrence: None)
  Receive Date: 20100921
  Receipt Date: 20100819
  Transmission Date: 20110219
  Serious: Yes (Hospitalization, Other)
  Sender: FDA-Public Use
  Company Number: US-BAYER-201011736NA

PATIENT
  Age: 19 Year
  Sex: Female
  Weight: 93 kg

DRUGS (29)
  1. YASMIN [Suspect]
     Indication: ORAL CONTRACEPTION
     Route: 048
     Dates: start: 20050601, end: 20080701
  2. OCELLA [Suspect]
     Indication: ORAL CONTRACEPTION
     Route: 048
     Dates: start: 20080721, end: 20090719
  3. OXYCODONE HCL AND ACETAMINOPHEN [Concomitant]
     Dosage: 5MG/325 MG
     Dates: start: 20060816
  4. CIPROFLOXACIN [Concomitant]
     Dates: start: 20061205
  5. MEPROZINE [Concomitant]
     Dates: start: 20070727, end: 20080401
  6. SULFAMETHOXAZOLE AND TRIMETHOPRIM [Concomitant]
     Dosage: 800/160 TABS
     Dates: start: 20061114
  7. TRAMADOL [Concomitant]
     Dates: start: 20060711
  8. INDOMETHACIN [Concomitant]
     Dates: start: 20060713
  9. CLOTRIMAZOLE [Concomitant]
     Dates: start: 20060725
  10. PROMETHAZINE VC W/CODEINE SYRUP [Concomitant]
  11. DIPHENOXYLATE HCL + ATROPINE SULFATE [Concomitant]
  12. FAMOTIDINE [Concomitant]
     Route: 048
  13. MEPROZINE [Concomitant]
     Indication: PRODUCT USED FOR UNKNOWN INDICATION
     Dosage: 50 MG/25 MG
  14. BACTRIM DS [Concomitant]
     Indication: PRODUCT USED FOR UNKNOWN INDICATION
     Dates: start: 20061114
  15. PHENERGAN VC [Concomitant]
     Indication: PRODUCT USED FOR UNKNOWN INDICATION
     Dates: start: 20061114
  16. PANLOR DC [Concomitant]
     Indication: PRODUCT USED FOR UNKNOWN INDICATION
     Dates: start: 20080414
  17. ANUSOL HC [Concomitant]
     Indication: PRODUCT USED FOR UNKNOWN INDICATION
     Dates: start: 20080731
  18. PERCOCET [Concomitant]
     Indication: PRODUCT USED FOR UNKNOWN INDICATION
     Dates: start: 20080731
  19. DONNATAL [Concomitant]
     Indication: PRODUCT USED FOR UNKNOWN INDICATION
     Dates: start: 20090630
  20. METOCLOPRAMIDE [Concomitant]
     Indication: PRODUCT USED FOR UNKNOWN INDICATION
     Dates: start: 20090630
  21. TORADOL [Concomitant]
     Indication: ANAL FISSURE
     Dates: start: 20090808
  22. HYDROCORTISONE [Concomitant]
     Indication: ANAL FISSURE
     Dates: start: 20090813
  23. LIDOCAINE [Concomitant]
     Indication: ANAL FISSURE
     Dates: start: 20090813
  24. FLEXERIL [Concomitant]
     Indication: PRODUCT USED FOR UNKNOWN INDICATION
     Dates: start: 20091007
  25. NAPROSYN [Concomitant]
     Indication: PRODUCT USED FOR UNKNOWN INDICATION
     Dates: start: 20091013
  26. ZOFRAN [Concomitant]
     Indication: PRODUCT USED FOR UNKNOWN INDICATION
     Dates: start: 20100215
  27. SODIUM CHLORIDE 0.9% [Concomitant]
     Indication: PRODUCT USED FOR UNKNOWN INDICATION
     Route: 042
     Dates: start: 20100215
  28. MAALOX [Concomitant]
     Indication: PRODUCT USED FOR UNKNOWN INDICATION
     Dates: start: 20100215
  29. LIDOCAINE HCL VISCOUS [Concomitant]
     Indication: PRODUCT USED FOR UNKNOWN INDICATION
     Dates: start: 20100215

REACTIONS (6)
  - ABDOMINAL PAIN UPPER [None]
  - CHOLECYSTITIS ACUTE [None]
  - CHOLELITHIASIS [None]
  - GALLBLADDER CHOLESTEROLOSIS [None]
  - HAEMATEMESIS [None]
  - HAEMATOCHEZIA [None]
